FAERS Safety Report 8020063-4 (Version None)
Quarter: 2012Q1

REPORT INFORMATION
  Report Type: 
  Country: None (occurrence: None)
  Receive Date: 20120103
  Receipt Date: 20120102
  Transmission Date: 20120608
  Serious: Yes (Hospitalization)
  Sender: FDA-Public Use
  Company Number: FR-EISAI INC-E2020-09869-SPO-FR

PATIENT
  Sex: Male

DRUGS (8)
  1. ARICEPT [Suspect]
     Indication: DEMENTIA ALZHEIMER'S TYPE
     Route: 048
  2. CITALOPRAM HYDROBROMIDE [Suspect]
     Dosage: 0.5 UNITS DAILY
     Route: 048
  3. ACTONEL [Suspect]
     Dosage: 35 MG WEEKLY
     Route: 048
  4. PENTOXIFYLLINE [Suspect]
     Indication: ATRIAL FIBRILLATION
     Dosage: 20 MG OR 25 MG (ALTERED EACH TWO DAYS)
     Route: 048
     Dates: end: 20110903
  5. BI-TILDIEM LP [Concomitant]
     Dosage: 180 MG DAILY
     Route: 048
  6. DENSICAL [Concomitant]
     Dosage: 500 MG DAILY
  7. ATORVASTATIN CALCIUM [Concomitant]
     Dosage: 10 MG DAILY
     Route: 048
  8. TRANDOLAPRIL [Concomitant]
     Route: 048

REACTIONS (20)
  - GASTROINTESTINAL HAEMORRHAGE [None]
  - TACHYCARDIA [None]
  - PETECHIAE [None]
  - OVERDOSE [None]
  - HELICOBACTER GASTRITIS [None]
  - IRON DEFICIENCY [None]
  - AMNESIA [None]
  - AORTIC VALVE STENOSIS [None]
  - CAROTID ARTERIOSCLEROSIS [None]
  - INTERNATIONAL NORMALISED RATIO INCREASED [None]
  - VERTEBRAL ARTERY STENOSIS [None]
  - PHLEBITIS SUPERFICIAL [None]
  - MITRAL VALVE INCOMPETENCE [None]
  - LEFT ATRIAL DILATATION [None]
  - MALAISE [None]
  - ANAEMIA [None]
  - DUODENAL ULCER [None]
  - HYPOTENSION [None]
  - DUODENITIS [None]
  - AORTIC ARTERIOSCLEROSIS [None]
